FAERS Safety Report 15797618 (Version 1)
Quarter: 2019Q1

REPORT INFORMATION
  Report Type: Spontaneous
  Country: US (occurrence: US)
  Receive Date: 20190108
  Receipt Date: 20190108
  Transmission Date: 20190417
  Serious: Yes (Death, Other)
  Sender: FDA-Public Use
  Company Number: US-BAUSCH-BL-2018-036334

PATIENT
  Age: 11 Month
  Sex: Female

DRUGS (1)
  1. NIFEDIPINE. [Suspect]
     Active Substance: NIFEDIPINE
     Indication: PRODUCT USED FOR UNKNOWN INDICATION
     Dosage: AT LEAST ONE PARTIALLY DISSOLVED PILL IN MOUTH
     Route: 048

REACTIONS (6)
  - Atrioventricular block [Unknown]
  - Gastrointestinal haemorrhage [Unknown]
  - Toxicity to various agents [Fatal]
  - Bradycardia [Unknown]
  - Vomiting [Unknown]
  - Cardiac arrest [Unknown]
